FAERS Safety Report 20983185 (Version 2)
Quarter: 2022Q2

REPORT INFORMATION
  Report Type: Spontaneous
  Country: DE (occurrence: DE)
  Receive Date: 20220620
  Receipt Date: 20220621
  Transmission Date: 20220721
  Serious: Yes (Other)
  Sender: FDA-Public Use
  Company Number: DE-DSJP-DSE-2022-121122

PATIENT
  Sex: Female
  Weight: 62 kg

DRUGS (1)
  1. ENHERTU [Suspect]
     Active Substance: FAM-TRASTUZUMAB DERUXTECAN-NXKI
     Indication: Metastatic neoplasm
     Dosage: 5.4 MG/KG
     Route: 042

REACTIONS (3)
  - Listless [Recovering/Resolving]
  - Fatigue [Recovering/Resolving]
  - Fatigue [Recovering/Resolving]
